FAERS Safety Report 14692379 (Version 1)
Quarter: 2018Q1

REPORT INFORMATION
  Report Type: Spontaneous
  Country: HR (occurrence: HR)
  Receive Date: 20180329
  Receipt Date: 20180329
  Transmission Date: 20180509
  Serious: Yes (Other)
  Sender: FDA-Public Use
  Company Number: HR-ASTRAZENECA-2018SE36480

PATIENT

DRUGS (4)
  1. FULVESTRANT. [Suspect]
     Active Substance: FULVESTRANT
     Indication: METASTASES TO BONE
     Dosage: DOSE UNKNOWN
     Route: 030
     Dates: start: 2016
  2. TAMOXIFEN [Suspect]
     Active Substance: TAMOXIFEN
     Indication: METASTASES TO BONE
     Route: 048
     Dates: start: 2012, end: 2014
  3. ANASTROZOLE. [Suspect]
     Active Substance: ANASTROZOLE
     Indication: METASTASES TO BONE
     Dosage: DOSE UNKNOWN
     Route: 048
     Dates: start: 2008, end: 2012
  4. EXEMESTANE. [Suspect]
     Active Substance: EXEMESTANE
     Indication: METASTASES TO BONE
     Route: 065
     Dates: start: 2014, end: 2016

REACTIONS (2)
  - Malignant neoplasm progression [Unknown]
  - Metastases to bone [Not Recovered/Not Resolved]
